FAERS Safety Report 7352272-1 (Version None)
Quarter: 2011Q1

REPORT INFORMATION
  Report Type: 
  Country: None (occurrence: None)
  Receive Date: 20110315
  Receipt Date: 20110309
  Transmission Date: 20110831
  Serious: Yes (Hospitalization)
  Sender: FDA-Public Use
  Company Number: IE-ELI_LILLY_AND_COMPANY-IE201103002822

PATIENT
  Sex: Female

DRUGS (6)
  1. ANTIBIOTICS [Concomitant]
  2. FORTEO [Suspect]
     Indication: OSTEOPOROSIS
     Dosage: 20 UG, UNK
     Dates: start: 20110307
  3. GALFER [Concomitant]
  4. DIOVAN [Concomitant]
  5. ELTROXIN [Concomitant]
  6. FOLIC ACID [Concomitant]

REACTIONS (1)
  - CELLULITIS [None]
